FAERS Safety Report 19944162 (Version 3)
Quarter: 2024Q1

REPORT INFORMATION
  Report Type: Spontaneous
  Country: US (occurrence: US)
  Receive Date: 20211011
  Receipt Date: 20240124
  Transmission Date: 20240410
  Serious: Yes (Hospitalization)
  Sender: FDA-Public Use
  Company Number: US-INCYTE CORPORATION-2021IN009092

PATIENT

DRUGS (3)
  1. JAKAFI [Suspect]
     Active Substance: RUXOLITINIB
     Indication: Myelofibrosis
     Dosage: 5 MG TABLET, ALTERNATING WITH 10 MG (TWO 5 MG TABLETS), BID
     Route: 048
     Dates: start: 20191125
  2. JAKAFI [Suspect]
     Active Substance: RUXOLITINIB
     Dosage: 5 MG ALTERNATE WITH 10 MG, TWICE DAILY
     Route: 048
     Dates: start: 20200303, end: 20211015
  3. JAKAFI [Suspect]
     Active Substance: RUXOLITINIB
     Dosage: 5 MILLIGRAM, QD
     Route: 048

REACTIONS (10)
  - Heart rate increased [Unknown]
  - Dysuria [Unknown]
  - Malaise [Unknown]
  - Dyspnoea [Unknown]
  - Swelling face [Unknown]
  - Asthenia [Unknown]
  - Pain [Unknown]
  - Product availability issue [Unknown]
  - Product distribution issue [Unknown]
  - Nausea [Unknown]
